FAERS Safety Report 21664804 (Version 1)
Quarter: 2022Q4

REPORT INFORMATION
  Report Type: Spontaneous
  Country: US (occurrence: None)
  Receive Date: 20221130
  Receipt Date: 20221130
  Transmission Date: 20230113
  Serious: No
  Sender: FDA-Public Use
  Company Number: None

PATIENT
  Sex: Female

DRUGS (1)
  1. NIVESTYM [Suspect]
     Active Substance: FILGRASTIM-AAFI
     Indication: Neutropenia
     Dosage: OTHER FREQUENCY : DAILY FOR 3 DAYS;?
     Route: 058
     Dates: start: 20221128

REACTIONS (3)
  - Device defective [None]
  - Needle issue [None]
  - Drug dose omission by device [None]
